FAERS Safety Report 9537663 (Version 3)
Quarter: 2013Q4

REPORT INFORMATION
  Report Type: Spontaneous
  Country: IT (occurrence: IT)
  Receive Date: 20130919
  Receipt Date: 20131024
  Transmission Date: 20140711
  Serious: Yes (Hospitalization, Other)
  Sender: FDA-Public Use
  Company Number: IT-ELI_LILLY_AND_COMPANY-IT201309003869

PATIENT
  Age: 78 Year
  Sex: Male

DRUGS (3)
  1. HUMALOG LISPRO [Suspect]
     Indication: TYPE 2 DIABETES MELLITUS
     Dosage: 32 U, QD
     Route: 058
     Dates: start: 20090101, end: 20130708
  2. LANTUS [Suspect]
     Indication: TYPE 2 DIABETES MELLITUS
     Dosage: UNK
     Route: 058
     Dates: start: 20090101, end: 20130708
  3. COUMADIN [Concomitant]
     Dosage: 5 MG, UNK

REACTIONS (5)
  - Craniocerebral injury [Recovered/Resolved]
  - Hypoglycaemic unconsciousness [Recovered/Resolved]
  - Presyncope [Unknown]
  - Fall [Unknown]
  - Excoriation [Unknown]
